FAERS Safety Report 26094099 (Version 3)
Quarter: 2025Q4

REPORT INFORMATION
  Report Type: Spontaneous
  Country: PE (occurrence: PE)
  Receive Date: 20251126
  Receipt Date: 20251205
  Transmission Date: 20260118
  Serious: Yes (Other)
  Sender: BRISTOL-MYERS SQUIBB COMPANY
  Company Number: PE-BRISTOL-MYERS SQUIBB COMPANY-2025-159231

PATIENT
  Age: 37 Year
  Sex: Female

DRUGS (1)
  1. OPDUALAG [Suspect]
     Active Substance: NIVOLUMAB\RELATLIMAB-RMBW
     Indication: Metastatic malignant melanoma
     Dosage: DOSE: 480 MG NIVOLUMAB/160 MG RELATLIMAB
     Route: 042

REACTIONS (2)
  - Keratitis [Unknown]
  - Uveitis [Unknown]

NARRATIVE: CASE EVENT DATE: 20251111
